FAERS Safety Report 15933900 (Version 1)
Quarter: 2019Q1

REPORT INFORMATION
  Report Type: Spontaneous
  Country: BG (occurrence: BG)
  Receive Date: 20190207
  Receipt Date: 20190207
  Transmission Date: 20190417
  Serious: Yes (Other)
  Sender: FDA-Public Use
  Company Number: BG-ASTRAZENECA-2018SF07616

PATIENT
  Sex: Male

DRUGS (2)
  1. ALFA LIPOIC ACID [Concomitant]
  2. XIGDUO XR [Suspect]
     Active Substance: DAPAGLIFLOZIN PROPANEDIOL\METFORMIN HYDROCHLORIDE
     Indication: TYPE 2 DIABETES MELLITUS
     Route: 048
     Dates: start: 20160509, end: 20180615

REACTIONS (3)
  - Bladder transitional cell carcinoma [Unknown]
  - Diabetes mellitus inadequate control [Unknown]
  - Prostatitis [Unknown]

NARRATIVE: CASE EVENT DATE: 20180615
